FAERS Safety Report 24352949 (Version 1)
Quarter: 2024Q3

REPORT INFORMATION
  Report Type: Report from Study
  Country: AT (occurrence: AT)
  Receive Date: 20240923
  Receipt Date: 20240923
  Transmission Date: 20241017
  Serious: No
  Sender: ROCHE
  Company Number: AT-ROCHE-3478019

PATIENT
  Age: 75 Year
  Sex: Female
  Weight: 53.0 kg

DRUGS (49)
  1. HERCEPTIN [Suspect]
     Active Substance: TRASTUZUMAB
     Indication: HER2 positive breast cancer
     Dosage: MOST RECENT DOSE PRIOR TO THE EVENT: 27/FEB/2020
     Route: 042
     Dates: start: 20160629, end: 20180621
  2. HERCEPTIN [Suspect]
     Active Substance: TRASTUZUMAB
     Route: 042
     Dates: start: 20180719, end: 20200227
  3. HERCEPTIN [Suspect]
     Active Substance: TRASTUZUMAB
     Route: 042
     Dates: start: 20200227, end: 20200520
  4. XELODA [Suspect]
     Active Substance: CAPECITABINE
     Indication: HER2 positive breast cancer
     Dosage: MOST RECENT DOSE PRIOR TO THE EVENT: FEB/2022? FREQUENCY TEXT:OTHER
     Route: 048
     Dates: start: 20211025, end: 202201
  5. XELODA [Suspect]
     Active Substance: CAPECITABINE
     Dosage: D1-14, Q3W
     Route: 048
     Dates: start: 20220118, end: 202202
  6. XELODA [Suspect]
     Active Substance: CAPECITABINE
     Dosage: D1-14, Q3W
     Route: 048
     Dates: start: 202202, end: 20220721
  7. PERJETA [Suspect]
     Active Substance: PERTUZUMAB
     Indication: HER2 positive breast cancer
     Dosage: MOST RECENT DOSE PRIOR TO THE EVENT: 27/FEB/2020
     Route: 042
     Dates: start: 20160629, end: 20180601
  8. PERJETA [Suspect]
     Active Substance: PERTUZUMAB
     Route: 042
     Dates: start: 20180719, end: 20200227
  9. PERJETA [Suspect]
     Active Substance: PERTUZUMAB
     Route: 042
     Dates: start: 20200227, end: 20200227
  10. FASLODEX [Suspect]
     Active Substance: FULVESTRANT
     Indication: HER2 positive breast cancer
     Dosage: MOST RECENT DOSE RECEIVED ON OCT/2021
     Route: 030
     Dates: start: 20200716, end: 202110
  11. PALBOCICLIB [Suspect]
     Active Substance: PALBOCICLIB
     Indication: HER2 positive breast cancer
     Dosage: MOST RECENT DOSE PRIOR TO THE EVENT: DEC/2020? FREQUENCY TEXT:OTHER
     Route: 048
     Dates: start: 202011, end: 202012
  12. PALBOCICLIB [Suspect]
     Active Substance: PALBOCICLIB
     Route: 048
     Dates: start: 202012, end: 202110
  13. RIBOCICLIB [Suspect]
     Active Substance: RIBOCICLIB
     Indication: HER2 positive breast cancer
     Dosage: MOST RECENT DOSE PRIOR TO THE EVENT: 24/AUG/2020? FREQUENCY TEXT:OTHER
     Route: 048
     Dates: start: 20200716, end: 202008
  14. RIBOCICLIB [Suspect]
     Active Substance: RIBOCICLIB
     Route: 048
     Dates: start: 20200824, end: 20201118
  15. TAXOTERE [Suspect]
     Active Substance: DOCETAXEL
     Indication: HER2 positive breast cancer
     Dosage: MOST RECENT DOSE RECEIVED ON 01/SEP/2016
     Route: 042
     Dates: start: 20160629, end: 20160901
  16. FEMARA [Suspect]
     Active Substance: LETROZOLE
     Indication: HER2 positive breast cancer
     Dosage: MOST RECENT DOSE RECEIVED ON 29/JUN/2020
     Route: 048
     Dates: start: 20161021
  17. ENHERTU [Suspect]
     Active Substance: FAM-TRASTUZUMAB DERUXTECAN-NXKI
     Indication: HER2 positive breast cancer
     Route: 042
     Dates: start: 20220823, end: 20220823
  18. ENHERTU [Suspect]
     Active Substance: FAM-TRASTUZUMAB DERUXTECAN-NXKI
     Route: 042
     Dates: start: 20220915, end: 20231024
  19. ENHERTU [Suspect]
     Active Substance: FAM-TRASTUZUMAB DERUXTECAN-NXKI
     Route: 042
     Dates: start: 20231121
  20. NEBIVOLOL HYDROCHLORIDE [Concomitant]
     Active Substance: NEBIVOLOL HYDROCHLORIDE
     Dosage: ONGOING = CHECKED
     Dates: start: 20170115
  21. ASPIRIN [Concomitant]
     Active Substance: ASPIRIN
     Dosage: ONGOING = CHECKED
     Dates: start: 20170115
  22. DIPRODERM (AUSTRIA) [Concomitant]
     Dosage: ONGOING = CHECKED
     Dates: start: 20180621
  23. METHYLPREDNISOLONE ACEPONATE [Concomitant]
     Active Substance: METHYLPREDNISOLONE ACEPONATE
     Indication: Palmar-plantar erythrodysaesthesia syndrome
     Dosage: ONGOING = CHECKED
     Dates: start: 20201111
  24. BETAISODONA [Concomitant]
     Active Substance: POVIDONE-IODINE
     Indication: Paronychia
     Dosage: ONGOING = CHECKED
     Dates: start: 20201111
  25. EUTHYROX [Concomitant]
     Active Substance: LEVOTHYROXINE SODIUM
     Dosage: ONGOING = CHECKED
     Dates: start: 20210223
  26. AMOXICILLIN\CLAVULANATE POTASSIUM [Concomitant]
     Active Substance: AMOXICILLIN\CLAVULANATE POTASSIUM
     Indication: Osteonecrosis of jaw
     Dosage: ONGOING = CHECKED
     Dates: start: 20210915
  27. HYDROMORPHONE HYDROCHLORIDE [Concomitant]
     Active Substance: HYDROMORPHONE HYDROCHLORIDE
     Indication: Pain
     Dosage: ONGOING = CHECKED
     Dates: start: 20210915
  28. HYDROMORPHONE HYDROCHLORIDE [Concomitant]
     Active Substance: HYDROMORPHONE HYDROCHLORIDE
     Dosage: ONGOING = CHECKED
     Dates: start: 20210915
  29. NOVALGIN (AUSTRIA) [Concomitant]
     Indication: Osteonecrosis of jaw
     Dosage: ONGOING = CHECKED
     Dates: start: 20210915
  30. NOVALGIN (AUSTRIA) [Concomitant]
     Indication: Pain
     Dosage: ONGOING = CHECKED
     Dates: start: 20220722
  31. PANTOPRAZOLE SODIUM [Concomitant]
     Active Substance: PANTOPRAZOLE SODIUM
     Indication: Gastritis
     Dosage: ONGOING = CHECKED
     Dates: start: 20211115
  32. TRAMADOL [Concomitant]
     Active Substance: TRAMADOL\TRAMADOL HYDROCHLORIDE
     Indication: Contusion
     Dosage: ONGOING = CHECKED
     Dates: start: 20220615
  33. APREPITANT [Concomitant]
     Active Substance: APREPITANT
     Dosage: ONGOING = CHECKED
     Dates: start: 20220823
  34. APREPITANT [Concomitant]
     Active Substance: APREPITANT
     Dosage: ONGOING = CHECKED
     Dates: start: 20220824
  35. DEXAMETHASONE [Concomitant]
     Active Substance: DEXAMETHASONE
     Dosage: ONGOING = CHECKED
     Dates: start: 20220823
  36. ONDANSETRON [Concomitant]
     Active Substance: ONDANSETRON
     Dosage: ONGOING = CHECKED
     Dates: start: 20220823
  37. ONDANSETRON [Concomitant]
     Active Substance: ONDANSETRON
     Dosage: ONGOING = CHECKED
     Dates: start: 20220916
  38. LOPERAMIDE HYDROCHLORIDE [Concomitant]
     Active Substance: LOPERAMIDE HYDROCHLORIDE
     Dosage: ONGOING = CHECKED
     Dates: start: 20220902
  39. XGEVA [Concomitant]
     Active Substance: DENOSUMAB
     Dosage: ONGOING = NOT CHECKED
     Dates: start: 20161121
  40. ATORVASTATIN [Concomitant]
     Active Substance: ATORVASTATIN
     Dosage: ONGOING = NOT CHECKED
     Dates: start: 20170115, end: 20170115
  41. LISINOPRIL [Concomitant]
     Active Substance: LISINOPRIL
     Dosage: ONGOING = NOT CHECKED
     Dates: start: 20170115, end: 20210915
  42. NEBIVOLOL HYDROCHLORIDE [Concomitant]
     Active Substance: NEBIVOLOL HYDROCHLORIDE
     Dosage: ONGOING = CHECKED
     Dates: start: 20170115
  43. OSPEN [Concomitant]
     Dates: start: 20210114, end: 20210915
  44. ELO MEL [Concomitant]
     Dates: start: 20210908, end: 20210908
  45. AMPICILLIN [Concomitant]
     Active Substance: AMPICILLIN
     Dates: start: 20210915, end: 20210915
  46. ENOXAPARIN SODIUM [Concomitant]
     Active Substance: ENOXAPARIN SODIUM
     Dates: start: 20210915, end: 20210915
  47. LASIX [Concomitant]
     Active Substance: FUROSEMIDE
     Dates: start: 20210915, end: 20210915
  48. SODIUM CHLORIDE [Concomitant]
     Active Substance: SODIUM CHLORIDE
     Dates: start: 20210915, end: 20210915
  49. KALIORAL [Concomitant]
     Dates: start: 20220902, end: 20220906

REACTIONS (1)
  - Nausea [Recovering/Resolving]

NARRATIVE: CASE EVENT DATE: 20231015
